APPROVED DRUG PRODUCT: HYDRALAZINE HYDROCHLORIDE
Active Ingredient: HYDRALAZINE HYDROCHLORIDE
Strength: 25MG
Dosage Form/Route: TABLET;ORAL
Application: A203845 | Product #001 | TE Code: AA
Applicant: CADILA PHARMACEUTICALS LTD
Approved: Sep 18, 2014 | RLD: No | RS: No | Type: RX